FAERS Safety Report 4713614-6 (Version None)
Quarter: 2005Q3

REPORT INFORMATION
  Report Type: 
  Country: None (occurrence: None)
  Receive Date: 20050711
  Receipt Date: 20050628
  Transmission Date: 20060218
  Serious: Yes (Hospitalization)
  Sender: FDA-Public Use
  Company Number: 2005091119

PATIENT
  Age: 54 Year
  Sex: Female

DRUGS (3)
  1. NEURONTIN [Suspect]
     Indication: INTERVERTEBRAL DISC PROTRUSION
     Dosage: ORAL
     Route: 048
     Dates: start: 20050512, end: 20050520
  2. RIVOTRIL (CLONAZEPAM) [Concomitant]
  3. OROCAL (CALCIUM CARBONATE) [Concomitant]

REACTIONS (1)
  - NEUTROPENIA [None]
